FAERS Safety Report 6285397-2 (Version None)
Quarter: 2009Q3

REPORT INFORMATION
  Report Type: 
  Country: None (occurrence: None)
  Receive Date: 20090723
  Receipt Date: 20090714
  Transmission Date: 20100115
  Serious: Yes (Other)
  Sender: FDA-Public Use
  Company Number: 2009SP015590

PATIENT
  Sex: Female

DRUGS (1)
  1. DESELEX (DESLORATADINE) (DESLORATADINE) [Suspect]

REACTIONS (2)
  - BRONCHOSPASM [None]
  - SKIN REACTION [None]
